FAERS Safety Report 6319192-2 (Version None)
Quarter: 2009Q3

REPORT INFORMATION
  Report Type: 
  Country: None (occurrence: None)
  Receive Date: 20090821
  Receipt Date: 20080814
  Transmission Date: 20100115
  Serious: No
  Sender: FDA-Public Use
  Company Number: US-ABBOTT-08P-163-0470622-00

PATIENT
  Sex: Male
  Weight: 100 kg

DRUGS (26)
  1. NIASPAN [Suspect]
     Indication: HIGH DENSITY LIPOPROTEIN DECREASED
     Dosage: DAILY AT BEDTIME
     Route: 048
     Dates: start: 20080807, end: 20080814
  2. HYDROCHLORIDE [Concomitant]
     Indication: HYPERTENSION
  3. METROPROLOL ER [Concomitant]
     Indication: CORONARY ARTERY BYPASS
  4. LISINOPRIL [Concomitant]
     Indication: HYPERTENSION
  5. LISINOPRIL [Concomitant]
     Indication: CARDIAC DISORDER
  6. ATORVASTATIN CALCIUM [Concomitant]
     Indication: BLOOD CHOLESTEROL INCREASED
  7. MORNIFLUMATE [Concomitant]
     Indication: URINE FLOW DECREASED
  8. POTASSIUM CITRATE [Concomitant]
     Indication: NEPHROLITHIASIS
  9. LEVETIRACETAM [Concomitant]
     Indication: CONVULSION
  10. METFORMIN [Concomitant]
     Indication: DIABETES MELLITUS
  11. GLIMEPIRIDE [Concomitant]
     Indication: DIABETES MELLITUS
  12. DICLOXACILL [Concomitant]
     Indication: DRUG USE FOR UNKNOWN INDICATION
  13. PERCOCET [Concomitant]
     Indication: PAIN
     Dosage: AS NEEDED
  14. MACROGOL [Concomitant]
     Indication: CONSTIPATION
  15. ASPIRIN [Concomitant]
     Indication: CARDIAC DISORDER
  16. FISH OIL [Concomitant]
     Indication: BLOOD CHOLESTEROL INCREASED
  17. ONE A DAY [Concomitant]
     Indication: DRUG USE FOR UNKNOWN INDICATION
  18. SIENNA [Concomitant]
     Indication: CONSTIPATION
  19. DOZOL [Concomitant]
     Indication: SLEEP DISORDER THERAPY
  20. UVB NARROWBAND LIGHT TREATMENT [Concomitant]
     Indication: PSORIASIS
  21. COLBETASOL OINTMENT [Concomitant]
     Indication: SKIN DISORDER
  22. COLBETASOL SOLUTION [Concomitant]
     Indication: SKIN DISORDER
  23. ELIDE [Concomitant]
     Indication: DRUG USE FOR UNKNOWN INDICATION
  24. FLUOCINONIDE [Concomitant]
     Indication: SKIN DISORDER
  25. ULTRAPATE [Concomitant]
     Indication: SKIN DISORDER
  26. SESAME/ROSE GERAMIUM [Concomitant]
     Indication: SINUS DISORDER

REACTIONS (6)
  - BLOOD GLUCOSE INCREASED [None]
  - PAIN [None]
  - RASH [None]
  - RENAL DISORDER [None]
  - RENAL PAIN [None]
  - SKIN BURNING SENSATION [None]
